FAERS Safety Report 13122004 (Version 1)
Quarter: 2017Q1

REPORT INFORMATION
  Report Type: Spontaneous
  Country: US (occurrence: US)
  Receive Date: 20170117
  Receipt Date: 20170117
  Transmission Date: 20170428
  Serious: No
  Sender: FDA-Public Use
  Company Number: US-MYLANLABS-2016M1046830

PATIENT
  Age: 28 Year
  Sex: Female

DRUGS (1)
  1. ESTRADIOL TRANSDERMAL SYSTEM [Suspect]
     Active Substance: ESTRADIOL
     Indication: DYSMENORRHOEA
     Dosage: .025 MG/DAY, CHANGE PATCH TWICE WEEKLY
     Route: 062
     Dates: start: 201601

REACTIONS (1)
  - Drug ineffective for unapproved indication [Recovered/Resolved]

NARRATIVE: CASE EVENT DATE: 20161024
